FAERS Safety Report 15807497 (Version 1)
Quarter: 2019Q1

REPORT INFORMATION
  Report Type: Spontaneous
  Country: GB (occurrence: GB)
  Receive Date: 20190110
  Receipt Date: 20190110
  Transmission Date: 20190417
  Serious: Yes (Death)
  Sender: FDA-Public Use
  Company Number: PHHY2019GB003961

PATIENT
  Age: 16 Year
  Sex: Female
  Weight: 64 kg

DRUGS (5)
  1. CLOBAZAM. [Suspect]
     Active Substance: CLOBAZAM
     Indication: EPILEPSY
     Dosage: 10 MG, QD
     Route: 048
     Dates: start: 20170630
  2. MELATONIN [Suspect]
     Active Substance: MELATONIN
     Indication: SOMNOLENCE
     Dosage: 6 MG, QD
     Route: 048
     Dates: start: 20170516
  3. ZONISAMIDE. [Suspect]
     Active Substance: ZONISAMIDE
     Indication: EPILEPSY
     Dosage: 250 MG, BID
     Route: 048
     Dates: start: 20171106
  4. BRIVIACT [Suspect]
     Active Substance: BRIVARACETAM
     Indication: EPILEPSY
     Dosage: 50 MG, QD (25 MG, 2X/DAY (BID)
     Route: 048
     Dates: start: 20180601
  5. LEVETIRACETAM. [Suspect]
     Active Substance: LEVETIRACETAM
     Indication: EPILEPSY
     Dosage: 750 MG, QD (250 MG AM AND 500MG PM, 2X/DAY (BID))
     Route: 048
     Dates: start: 20130722

REACTIONS (2)
  - Death [Fatal]
  - Off label use [Unknown]

NARRATIVE: CASE EVENT DATE: 20180615
